FAERS Safety Report 11844504 (Version 1)
Quarter: 2015Q4

REPORT INFORMATION
  Report Type: Spontaneous
  Country: None (occurrence: None)
  Receive Date: 20151216
  Receipt Date: 20151216
  Transmission Date: 20160305
  Serious: No
  Sender: FDA-Public Use
  Company Number: None

PATIENT
  Age: 47 Year
  Sex: Female
  Weight: 58.97 kg

DRUGS (4)
  1. MUCINEX [Suspect]
     Active Substance: GUAIFENESIN
     Indication: FLUID RETENTION
     Dosage: ONE DOSE-12 HOURS
  2. PROBIOTICS [Concomitant]
     Active Substance: PROBIOTICS NOS
  3. MULTI-VITMAINS [Concomitant]
  4. HERB-PHARM LIVER TINCTURE [Concomitant]

REACTIONS (2)
  - Rash erythematous [None]
  - Pruritus [None]

NARRATIVE: CASE EVENT DATE: 20151215
